FAERS Safety Report 6586083-1 (Version None)
Quarter: 2010Q1

REPORT INFORMATION
  Report Type: 
  Country: None (occurrence: None)
  Receive Date: 20100216
  Receipt Date: 20100216
  Transmission Date: 20100710
  Serious: Yes (Life-Threatening)
  Sender: FDA-Public Use
  Company Number: None

PATIENT
  Age: 55 Year
  Sex: Female
  Weight: 77.2 kg

DRUGS (1)
  1. PIPERACILLIN AND TAZOBACTAM [Suspect]
     Indication: PANCREATITIS
     Dosage: 3/375 GM TID IV
     Route: 042
     Dates: start: 20090708, end: 20090708

REACTIONS (1)
  - ANAPHYLACTIC REACTION [None]
